FAERS Safety Report 10463677 (Version 1)
Quarter: 2014Q3

REPORT INFORMATION
  Report Type: Spontaneous
  Country: US (occurrence: None)
  Receive Date: 20140918
  Receipt Date: 20140918
  Transmission Date: 20150326
  Serious: Yes (Disabling, Other)
  Sender: FDA-Public Use
  Company Number: None

PATIENT
  Age: 49 Year
  Sex: Male
  Weight: 78.93 kg

DRUGS (2)
  1. CIPRO [Suspect]
     Active Substance: CIPROFLOXACIN HYDROCHLORIDE
     Indication: NEPHROLITHIASIS
     Route: 048
     Dates: start: 20111124, end: 20111127
  2. CIPRO [Suspect]
     Active Substance: CIPROFLOXACIN HYDROCHLORIDE
     Indication: URINARY TRACT INFECTION
     Route: 048
     Dates: start: 20111124, end: 20111127

REACTIONS (7)
  - Neuropathy peripheral [None]
  - Tendonitis [None]
  - Tendon rupture [None]
  - Meniscus injury [None]
  - Tinnitus [None]
  - Plantar fasciitis [None]
  - Pain [None]

NARRATIVE: CASE EVENT DATE: 20111124
